FAERS Safety Report 5278512-0 (Version None)
Quarter: 2007Q1

REPORT INFORMATION
  Report Type: 
  Country: None (occurrence: None)
  Receive Date: 20070322
  Receipt Date: 20070307
  Transmission Date: 20070707
  Serious: Yes (Life-Threatening, Hospitalization, Other)
  Sender: FDA-Public Use
  Company Number: IMP_2769_2007

PATIENT
  Age: 50 Year
  Sex: Male

DRUGS (2)
  1. RILUZOLE [Suspect]
     Indication: AMYOTROPHIC LATERAL SCLEROSIS
     Dosage: 50 MG BID UNK
  2. ZOLPIDEM [Concomitant]

REACTIONS (10)
  - ALANINE AMINOTRANSFERASE INCREASED [None]
  - ASPARTATE AMINOTRANSFERASE INCREASED [None]
  - ATRIAL FIBRILLATION [None]
  - BLOOD ALKALINE PHOSPHATASE INCREASED [None]
  - IDIOSYNCRATIC DRUG REACTION [None]
  - LYMPHADENOPATHY [None]
  - MARROW HYPERPLASIA [None]
  - NAUSEA [None]
  - PERICARDITIS CONSTRICTIVE [None]
  - RASH PRURITIC [None]
